FAERS Safety Report 18153568 (Version 8)
Quarter: 2020Q3

REPORT INFORMATION
  Report Type: Spontaneous
  Country: US (occurrence: US)
  Receive Date: 20200816
  Receipt Date: 20200918
  Transmission Date: 20201103
  Serious: No
  Sender: FDA-Public Use
  Company Number: US-AMGEN-USASP2020129343

PATIENT
  Age: 61 Year
  Sex: Male
  Weight: 85.71 kg

DRUGS (10)
  1. LEUCOVORIN [FOLINIC ACID] [Concomitant]
     Active Substance: LEUCOVORIN
     Dosage: 400 MILLIGRAM, Q2WK (EVERY 2 WEEKS)
     Route: 042
     Dates: start: 20200803
  2. AVASTIN [Concomitant]
     Active Substance: BEVACIZUMAB
     Dosage: 860 MILLIGRAM, Q2WK (EVERY 2 WEEKS)
     Route: 042
     Dates: start: 20200803
  3. ALOXI [Concomitant]
     Active Substance: PALONOSETRON HYDROCHLORIDE
     Dosage: 0.25 MILLIGRAM, Q2WK (EVERY 2 WEEKS)
     Route: 042
     Dates: start: 20200803
  4. NEULASTA [Suspect]
     Active Substance: PEGFILGRASTIM
     Dosage: 6 MILLIGRAM, Q2WK  (WITH CHEMO REGIMEN)
     Route: 058
  5. CAMPTOSAR [Concomitant]
     Active Substance: IRINOTECAN HYDROCHLORIDE
     Dosage: 360 MILLIGRAM, Q2WK (EVERY 2 WEEKS)
     Route: 042
     Dates: start: 20200803
  6. NEULASTA [Suspect]
     Active Substance: PEGFILGRASTIM
     Dosage: 6 MILLIGRAM, Q2WK  (WITH CHEMO REGIMEN)
     Route: 058
  7. NEULASTA [Suspect]
     Active Substance: PEGFILGRASTIM
     Indication: NEUTROPENIA
     Dosage: 6 MILLIGRAM, Q2WK (WITH CHEMO REGIMEN)
     Route: 058
     Dates: start: 20200805
  8. DECADRON [Concomitant]
     Active Substance: DEXAMETHASONE
     Dosage: 20 MILLIGRAM, Q2WK (EVERY 2 WEEKS)
     Route: 042
     Dates: start: 20200803
  9. ATROPINE. [Concomitant]
     Active Substance: ATROPINE
     Dosage: 0.25 MILLIGRAM, Q2WK (EVERY 2 WEEKS)
     Route: 042
     Dates: start: 20200803
  10. 5?FU [FLUOROURACIL] [Concomitant]
     Active Substance: FLUOROURACIL
     Dosage: 5600 MILLIGRAM, Q2WK (EVERY 2 WEEKS)
     Route: 042
     Dates: start: 20200803

REACTIONS (3)
  - Drug dose omission by device [Unknown]
  - Device physical property issue [Unknown]
  - Device leakage [Unknown]

NARRATIVE: CASE EVENT DATE: 20200806
